FAERS Safety Report 5209020-0 (Version None)
Quarter: 2007Q1

REPORT INFORMATION
  Report Type: 
  Country: None (occurrence: None)
  Receive Date: 20070116
  Receipt Date: 20070105
  Transmission Date: 20070707
  Serious: Yes (Hospitalization)
  Sender: FDA-Public Use
  Company Number: JP-MERCK-0701USA00917

PATIENT
  Age: 9 Year
  Sex: Female

DRUGS (5)
  1. SINGULAIR [Suspect]
     Indication: ASTHMA
     Route: 048
     Dates: start: 20060612, end: 20060615
  2. CLARITHROMYCIN [Suspect]
     Indication: BRONCHITIS
     Route: 048
     Dates: start: 20060612, end: 20060615
  3. HOKUNALIN [Suspect]
     Indication: ASTHMA
     Route: 061
     Dates: start: 20060612, end: 20060615
  4. ASVERIN [Suspect]
     Indication: BRONCHITIS
     Route: 065
     Dates: start: 20060612, end: 20060615
  5. TERBUTALINE SULFATE [Suspect]
     Indication: BRONCHITIS
     Route: 065
     Dates: start: 20060612, end: 20060615

REACTIONS (1)
  - STEVENS-JOHNSON SYNDROME [None]
